FAERS Safety Report 8781445 (Version 2)
Quarter: 2012Q4

REPORT INFORMATION
  Report Type: 
  Country: GB (occurrence: GB)
  Receive Date: 20120913
  Receipt Date: 20120913
  Transmission Date: 20130627
  Serious: Yes (Hospitalization)
  Sender: FDA-Public Use
  Company Number: PHFR2012GB003933

PATIENT
  Age: 71 Year
  Sex: Female

DRUGS (9)
  1. CLOZARIL [Suspect]
     Indication: SCHIZOPHRENIA
     Dosage: 200 mg, BID
     Route: 048
     Dates: start: 20070130
  2. VALPROATE SODIUM [Concomitant]
     Indication: SCHIZOPHRENIA, PARANOID TYPE
     Dosage: 200 mg, BID
     Route: 048
  3. SULPIRIDE [Concomitant]
     Dosage: 400 mg, BID
     Route: 048
  4. NIFEDIPINE RETARD [Concomitant]
     Indication: CARDIAC DISORDER
     Dosage: 10 mg, once a month
     Route: 048
  5. ASPIRINE DISPERSIBLE [Concomitant]
     Indication: CARDIAC DISORDER
     Dosage: 75 mg, once a month
     Route: 048
  6. FYBOGEL [Concomitant]
     Indication: CONSTIPATION
     Dosage: 1 sachet mane
  7. DIAZEPAM [Concomitant]
     Dosage: 2 mg, (PRN)
     Route: 048
  8. TAMOXIFEN [Concomitant]
     Indication: CARDIAC DISORDER
     Dosage: 10 mg,once a month
     Route: 048
  9. FERROUS FUMARATE [Concomitant]
     Dosage: 210 mg, (TDS)

REACTIONS (2)
  - Fall [Unknown]
  - Vomiting [Recovered/Resolved]
